FAERS Safety Report 7461943-8 (Version None)
Quarter: 2011Q2

REPORT INFORMATION
  Report Type: 
  Country: None (occurrence: None)
  Receive Date: 20110506
  Receipt Date: 20081001
  Transmission Date: 20111010
  Serious: Yes (Hospitalization, Other)
  Sender: FDA-Public Use
  Company Number: US-BAYER-2011-005905

PATIENT
  Age: 55 Year
  Sex: Male
  Weight: 81.633 kg

DRUGS (16)
  1. TRASYLOL [Suspect]
     Dosage: 50 CC/HR
     Route: 042
     Dates: end: 20060206
  2. METOPROLOL [Concomitant]
     Dosage: 100 MG, BID
     Route: 048
     Dates: start: 20040514
  3. IMDUR [Concomitant]
     Dosage: 60 MG, BID
     Route: 048
     Dates: start: 20041104
  4. LIPITOR [Concomitant]
     Dosage: 80 MG, QD
     Route: 048
     Dates: start: 20051128
  5. TRASYLOL [Suspect]
     Indication: CORONARY ARTERY BYPASS
     Dosage: 1 ML INITIAL TEST DOSE
     Route: 042
     Dates: start: 20060206
  6. DILAUDID [Concomitant]
     Dosage: UNK
     Dates: start: 20060206, end: 20060206
  7. CARTIA XT [Concomitant]
     Dosage: 180 MG, QD
     Route: 048
     Dates: start: 20050517
  8. DOBUTAMINE HYDROCHLORIDE [Concomitant]
     Dosage: UNK
     Dates: start: 20060206, end: 20060206
  9. TRASYLOL [Suspect]
     Dosage: 200 ML
     Route: 042
  10. DOPAMINE HCL [Concomitant]
     Dosage: UNK
     Dates: start: 20060206, end: 20060206
  11. TETRACYCLINE [Concomitant]
     Dosage: 250 MG, UNK
     Route: 048
     Dates: start: 20050328
  12. LISINOPRIL [Concomitant]
     Dosage: UNK
     Dates: start: 20000101
  13. INDAPAMIDE [Concomitant]
     Dosage: 2.5 MG, UNK
     Dates: start: 20051102
  14. ZINACEF [Concomitant]
     Dosage: UNK
     Dates: start: 20060206, end: 20060206
  15. NICARDIPINE HCL [Concomitant]
     Dosage: 0.25 MG/ML, UNK
     Route: 042
     Dates: start: 20060206, end: 20060206
  16. INSULIN [Concomitant]
     Dosage: UNK
     Dates: start: 20060206, end: 20060206

REACTIONS (7)
  - CARDIAC DISORDER [None]
  - MYOCARDIAL INFARCTION [None]
  - INJURY [None]
  - PAIN [None]
  - EMOTIONAL DISTRESS [None]
  - STRESS [None]
  - ANXIETY [None]
